FAERS Safety Report 10105903 (Version 2)
Quarter: 2014Q2

REPORT INFORMATION
  Report Type: Other
  Country: US (occurrence: US)
  Receive Date: 20140424
  Receipt Date: 20140611
  Transmission Date: 20141212
  Serious: Yes (Hospitalization, Other)
  Sender: FDA-Public Use
  Company Number: US-GSKPPD-2014GSK000861

PATIENT
  Age: 62 Year
  Sex: Female

DRUGS (1)
  1. AVANDIA [Suspect]
     Indication: DIABETES MELLITUS
     Route: 048
     Dates: start: 20080709

REACTIONS (4)
  - Coronary artery disease [None]
  - Atrial fibrillation [None]
  - Carotid artery stenosis [Recovered/Resolved]
  - Hypertension [Recovered/Resolved]
